FAERS Safety Report 18282280 (Version 1)
Quarter: 2020Q3

REPORT INFORMATION
  Report Type: Other
  Country: TW (occurrence: TW)
  Receive Date: 20200918
  Receipt Date: 20200918
  Transmission Date: 20201103
  Serious: Yes (Other)
  Sender: FDA-Public Use
  Company Number: TW-ROCHE-2676695

PATIENT

DRUGS (10)
  1. BEVACIZUMAB. [Suspect]
     Active Substance: BEVACIZUMAB
     Indication: COLORECTAL CANCER METASTATIC
     Route: 065
  2. 5?FU [Suspect]
     Active Substance: FLUOROURACIL
     Indication: COLORECTAL CANCER METASTATIC
     Route: 065
  3. LEUKOVORIN [Suspect]
     Active Substance: LEUCOVORIN SODIUM
     Indication: COLORECTAL CANCER METASTATIC
     Route: 065
  4. CAPECITABINE. [Suspect]
     Active Substance: CAPECITABINE
     Indication: COLORECTAL CANCER METASTATIC
     Route: 065
  5. URACIL [Suspect]
     Active Substance: URACIL
     Indication: COLORECTAL CANCER METASTATIC
     Route: 065
  6. IRINOTECAN [Suspect]
     Active Substance: IRINOTECAN
     Indication: COLORECTAL CANCER METASTATIC
     Route: 065
  7. FOLINIC ACID [Suspect]
     Active Substance: LEUCOVORIN
     Indication: COLORECTAL CANCER METASTATIC
     Route: 065
  8. OXALIPLATIN. [Suspect]
     Active Substance: OXALIPLATIN
     Indication: COLORECTAL CANCER METASTATIC
     Route: 065
  9. CETUXIMAB. [Suspect]
     Active Substance: CETUXIMAB
     Indication: COLORECTAL CANCER METASTATIC
     Dosage: RANGE FROM 600 TO 5600 MG
     Route: 065
  10. TEGAFUR [Suspect]
     Active Substance: TEGAFUR
     Indication: COLORECTAL CANCER METASTATIC
     Route: 065

REACTIONS (9)
  - Nausea [Unknown]
  - Vomiting [Unknown]
  - Fatigue [Unknown]
  - Mouth ulceration [Unknown]
  - Paronychia [Unknown]
  - Dry mouth [Unknown]
  - Decreased appetite [Unknown]
  - Insomnia [Unknown]
  - Dermatitis acneiform [Unknown]
